FAERS Safety Report 17539022 (Version 1)
Quarter: 2020Q1

REPORT INFORMATION
  Report Type: Spontaneous
  Country: US (occurrence: US)
  Receive Date: 20200313
  Receipt Date: 20200313
  Transmission Date: 20200409
  Serious: Yes (Other)
  Sender: FDA-Public Use
  Company Number: US-TEVA-2020-US-1196114

PATIENT
  Age: 86 Year
  Sex: Female

DRUGS (3)
  1. PRELEAF [Concomitant]
  2. SUMATRIPTAN. [Suspect]
     Active Substance: SUMATRIPTAN
     Dosage: 2 CAPSULES 3 TIMES DAILY
     Route: 065
  3. BUTALBITAL, ASPIRIN, AND CAFFEINE [Suspect]
     Active Substance: ASPIRIN\BUTALBITAL\CAFFEINE
     Indication: MIGRAINE
     Route: 065

REACTIONS (5)
  - Cardiac disorder [Unknown]
  - Vasospasm [Unknown]
  - Blood pressure increased [Recovered/Resolved]
  - Knee arthroplasty [Unknown]
  - Thrombosis [Unknown]

NARRATIVE: CASE EVENT DATE: 2011
